FAERS Safety Report 13929244 (Version 1)
Quarter: 2017Q3

REPORT INFORMATION
  Report Type: Other
  Country: CH (occurrence: CH)
  Receive Date: 20170901
  Receipt Date: 20170901
  Transmission Date: 20171127
  Serious: Yes (Hospitalization, Other)
  Sender: FDA-Public Use
  Company Number: CH-ACTELION-A-CH2017-158477

PATIENT
  Age: 7 Year
  Sex: Male

DRUGS (2)
  1. SILDENAFIL. [Concomitant]
     Active Substance: SILDENAFIL
  2. BOSENTAN. [Suspect]
     Active Substance: BOSENTAN
     Indication: PULMONARY ARTERIAL HYPERTENSION
     Dosage: UNK
     Route: 048

REACTIONS (17)
  - Fasciotomy [Recovering/Resolving]
  - Spinal cord ischaemia [Recovering/Resolving]
  - Paraplegia [Recovering/Resolving]
  - Areflexia [Recovering/Resolving]
  - Acidosis [Recovered/Resolved]
  - Walking aid user [Recovering/Resolving]
  - Compartment syndrome [Recovering/Resolving]
  - Pulmonary hypertensive crisis [Unknown]
  - Lung transplant [Unknown]
  - Laryngospasm [Unknown]
  - Atelectasis [Unknown]
  - Acute kidney injury [Not Recovered/Not Resolved]
  - Sensorimotor disorder [Recovering/Resolving]
  - Cardiac arrest [Recovered/Resolved]
  - General physical health deterioration [Recovering/Resolving]
  - Bladder dysfunction [Recovering/Resolving]
  - Tracheostomy [Unknown]
